FAERS Safety Report 8575929-3 (Version None)
Quarter: 2012Q3

REPORT INFORMATION
  Report Type: 
  Country: None (occurrence: None)
  Receive Date: 20120807
  Receipt Date: 20110919
  Transmission Date: 20120928
  Serious: No
  Sender: FDA-Public Use
  Company Number: US-PFIZER INC-K201000222

PATIENT
  Age: 43 Year
  Sex: Female
  Weight: 64.399 kg

DRUGS (8)
  1. CYTOMEL [Suspect]
     Dosage: 100 UG, 1X/DAY
     Dates: start: 20100101, end: 20100201
  2. KLONOPIN [Concomitant]
     Indication: ANXIETY
  3. CYTOMEL [Suspect]
     Dosage: 75 UG, 1X/DAY
     Dates: start: 20100201, end: 20100201
  4. LEVONORGESTREL + ETHINYL ESTRADIOL [Concomitant]
     Indication: CONTRACEPTION
  5. CYTOMEL [Suspect]
     Indication: HYPOTHYROIDISM
     Dosage: 75 UG, 1X/DAY
     Dates: start: 20091227, end: 20100101
  6. CYTOMEL [Suspect]
     Dosage: 50 UG, 1X/DAY
     Dates: start: 20100223
  7. CAFFEINE CITRATE [Suspect]
     Dosage: UNK
  8. WELLBUTRIN [Concomitant]
     Indication: DEPRESSION

REACTIONS (11)
  - VIRAL INFECTION [None]
  - HYPOTHYROIDISM [None]
  - HEART RATE INCREASED [None]
  - TRI-IODOTHYRONINE INCREASED [None]
  - DRY SKIN [None]
  - DRUG INEFFECTIVE [None]
  - BLOOD THYROID STIMULATING HORMONE DECREASED [None]
  - ANXIETY [None]
  - TREMOR [None]
  - HYPERTHYROIDISM [None]
  - HYPERHIDROSIS [None]
